FAERS Safety Report 5099298-9 (Version None)
Quarter: 2006Q3

REPORT INFORMATION
  Report Type: 
  Country: None (occurrence: None)
  Receive Date: 20060728
  Receipt Date: 20060421
  Transmission Date: 20061208
  Serious: No
  Sender: FDA-Public Use
  Company Number: COT_0520_2006

PATIENT
  Age: 52 Year
  Sex: Female
  Weight: 74 kg

DRUGS (17)
  1. VENTAVIS [Suspect]
     Indication: PULMONARY HYPERTENSION
     Dosage: 2.5 MCG ONCE IH
     Dates: start: 20060420, end: 20060420
  2. VENTAVIS [Suspect]
     Indication: PULMONARY HYPERTENSION
     Dosage: 5 MCG ONCE IH
     Dates: start: 20060420, end: 20060420
  3. WARFARIN SODIUM [Concomitant]
  4. LEFLUNOMIDE [Concomitant]
  5. AVINZA [Concomitant]
  6. FOLIC ACID [Concomitant]
  7. AMBIEN [Concomitant]
  8. ALBUTEROL [Concomitant]
  9. ADVAIR DISKUS 100/50 [Concomitant]
  10. SINGULAIR [Concomitant]
  11. ACTIVELLA [Concomitant]
  12. FLONASE [Concomitant]
  13. TRACLEER [Concomitant]
  14. LASIX [Concomitant]
  15. POTASSIUM [Concomitant]
  16. HYDROCODONE BITARTRATE [Concomitant]
  17. OXYGEN [Concomitant]

REACTIONS (4)
  - CHEST PAIN [None]
  - HYPOAESTHESIA ORAL [None]
  - PARAESTHESIA [None]
  - SWELLING FACE [None]
